FAERS Safety Report 17764159 (Version 2)
Quarter: 2020Q2

REPORT INFORMATION
  Report Type: Report from Study
  Country: US (occurrence: US)
  Receive Date: 20200511
  Receipt Date: 20200608
  Transmission Date: 20200714
  Serious: Yes (Life-Threatening, Hospitalization)
  Sender: FDA-Public Use
  Company Number: US-PFIZER INC-2020181496

PATIENT
  Age: 16 Year
  Sex: Female
  Weight: 70.4 kg

DRUGS (7)
  1. CYCLOPHOSPHAMIDE. [Suspect]
     Active Substance: CYCLOPHOSPHAMIDE
     Indication: PRECURSOR B-LYMPHOBLASTIC LYMPHOMA
     Dosage: 1950 MG, DAY 29
     Route: 042
     Dates: start: 20200127
  2. CYTARABINE. [Suspect]
     Active Substance: CYTARABINE
     Indication: PRECURSOR B-LYMPHOBLASTIC LYMPHOMA
     Dosage: 146 MG, DAYS 29-32, 36-39
     Route: 042
     Dates: start: 20200127
  3. INCB018424 [Suspect]
     Active Substance: RUXOLITINIB
     Indication: PRECURSOR B-LYMPHOBLASTIC LYMPHOMA
     Dosage: TABLET, 95 MG, BID (DAYS 29-42)
     Route: 048
     Dates: start: 20190709, end: 20200313
  4. PEGASPARGASE [Suspect]
     Active Substance: PEGASPARGASE
     Indication: PRECURSOR B-LYMPHOBLASTIC LYMPHOMA
     Dosage: 3750 IU, DAYS 4, 43
     Route: 042
     Dates: start: 20191217
  5. METHOTREXATE SODIUM. [Suspect]
     Active Substance: METHOTREXATE SODIUM
     Indication: PRECURSOR B-LYMPHOBLASTIC LYMPHOMA
     Dosage: 15 MG, DAYS 1, 29, 36
     Route: 037
     Dates: start: 20191212
  6. VINCRISTINE SULFATE. [Suspect]
     Active Substance: VINCRISTINE SULFATE
     Indication: PRECURSOR B-LYMPHOBLASTIC LYMPHOMA
     Dosage: 2 MG, DAYS 1, 8, 15, 43, 50
     Route: 042
     Dates: start: 20191212
  7. THIOGUANINE [Suspect]
     Active Substance: THIOGUANINE
     Indication: PRECURSOR B-LYMPHOBLASTIC LYMPHOMA
     Dosage: TABLET, 80 MG, DAYS 29-42
     Route: 048
     Dates: start: 20200127

REACTIONS (2)
  - Subclavian vein thrombosis [Not Recovered/Not Resolved]
  - Cryptococcal fungaemia [Recovered/Resolved]

NARRATIVE: CASE EVENT DATE: 20200229
